FAERS Safety Report 21975822 (Version 1)
Quarter: 2023Q1

REPORT INFORMATION
  Report Type: Spontaneous
  Country: US (occurrence: US)
  Receive Date: 20230210
  Receipt Date: 20230210
  Transmission Date: 20230418
  Serious: No
  Sender: FDA-Public Use
  Company Number: US-JNJFOC-20230212343

PATIENT
  Age: 58 Year
  Sex: Female

DRUGS (1)
  1. SPRAVATO [Suspect]
     Active Substance: ESKETAMINE
     Indication: Depression
     Route: 045

REACTIONS (3)
  - Dizziness [Recovered/Resolved]
  - Balance disorder [Recovered/Resolved]
  - Emotional disorder [Recovered/Resolved]
